FAERS Safety Report 6534631-X (Version None)
Quarter: 2010Q1

REPORT INFORMATION
  Report Type: 
  Country: None (occurrence: None)
  Receive Date: 20100112
  Receipt Date: 20100109
  Transmission Date: 20100710
  Serious: Yes (Hospitalization)
  Sender: FDA-Public Use
  Company Number: B0624842A

PATIENT
  Sex: Female

DRUGS (1)
  1. ZINNAT [Suspect]
     Indication: URINARY TRACT INFECTION
     Route: 065
     Dates: start: 20091201, end: 20091201

REACTIONS (3)
  - ANAPHYLACTIC REACTION [None]
  - RASH [None]
  - WHEEZING [None]
